FAERS Safety Report 24313685 (Version 1)
Quarter: 2024Q3

REPORT INFORMATION
  Report Type: Spontaneous
  Country: US (occurrence: None)
  Receive Date: 20240912
  Receipt Date: 20240912
  Transmission Date: 20241017
  Serious: No
  Sender: Public
  Company Number: None

PATIENT
  Age: 65 Year
  Sex: Male
  Weight: 59.6 kg

DRUGS (1)
  1. BREYANZI [Suspect]
     Active Substance: LISOCABTAGENE MARALEUCEL
     Indication: Diffuse large B-cell lymphoma
     Dosage: 1 DF DOSAGE FORM INTRAVENOUS
     Route: 042
     Dates: start: 20240716, end: 20240716

REACTIONS (4)
  - Cytokine release syndrome [None]
  - Chills [None]
  - Tachycardia [None]
  - Malaise [None]

NARRATIVE: CASE EVENT DATE: 20240718
